FAERS Safety Report 16317995 (Version 1)
Quarter: 2019Q2

REPORT INFORMATION
  Report Type: Spontaneous
  Country: GB (occurrence: GB)
  Receive Date: 20190516
  Receipt Date: 20190516
  Transmission Date: 20190711
  Serious: Yes (Hospitalization)
  Sender: FDA-Public Use
  Company Number: GB-CONCORDIA PHARMACEUTICALS INC.-E2B_00019750

PATIENT
  Age: 92 Year
  Sex: Female

DRUGS (16)
  1. BISOPROLOL [Concomitant]
     Active Substance: BISOPROLOL
     Dosage: IN THE MORNING
     Route: 048
  2. PREDNISOLONE. [Suspect]
     Active Substance: PREDNISOLONE
     Indication: LOWER RESPIRATORY TRACT INFECTION
     Route: 048
     Dates: start: 20190329, end: 20190402
  3. SIMVASTATIN. [Concomitant]
     Active Substance: SIMVASTATIN
     Dosage: AT NIGHT
     Route: 048
     Dates: end: 20190404
  4. APIXABAN [Concomitant]
     Active Substance: APIXABAN
     Route: 048
  5. OMEPRAZOLE. [Suspect]
     Active Substance: OMEPRAZOLE
     Route: 048
     Dates: end: 20190402
  6. CHEMYDUR XL [Concomitant]
     Active Substance: ISOSORBIDE MONONITRATE
     Dosage: IN THE MORNING
     Route: 048
  7. LEVOTHYROXINE SODIUM. [Concomitant]
     Active Substance: LEVOTHYROXINE SODIUM
     Route: 048
  8. FERROUS FUMARATE [Concomitant]
     Active Substance: FERROUS FUMARATE
     Route: 048
  9. ADCAL-D3 [Concomitant]
     Active Substance: CALCIUM CARBONATE\CHOLECALCIFEROL
     Route: 048
  10. MAGNESIUM ASPARTATE [Concomitant]
     Active Substance: MAGNESIUM ASPARTATE
     Route: 048
     Dates: start: 20190411, end: 20190413
  11. DOXYCYCLINE. [Concomitant]
     Active Substance: DOXYCYCLINE
     Route: 048
     Dates: start: 20190329, end: 20190402
  12. AMOXICILLIN. [Concomitant]
     Active Substance: AMOXICILLIN
     Route: 048
     Dates: start: 20190319, end: 20190325
  13. FLUTIFORM [Concomitant]
     Active Substance: FLUTICASONE PROPIONATE\FORMOTEROL FUMARATE
     Route: 050
  14. AIROMIR [Concomitant]
     Active Substance: ALBUTEROL SULFATE
     Dosage: PRN 100MICROGRAMS/DOSE
     Route: 050
  15. PREDNISOLONE. [Suspect]
     Active Substance: PREDNISOLONE
     Indication: LOWER RESPIRATORY TRACT INFECTION
     Route: 048
     Dates: start: 20190319, end: 20190324
  16. CITALOPRAM [Concomitant]
     Active Substance: CITALOPRAM HYDROBROMIDE
     Route: 048

REACTIONS (3)
  - Confusional state [Recovered/Resolved]
  - Hypomagnesaemia [Recovering/Resolving]
  - Hyponatraemia [Recovered/Resolved]

NARRATIVE: CASE EVENT DATE: 20190402
